FAERS Safety Report 6638431-1 (Version None)
Quarter: 2010Q1

REPORT INFORMATION
  Report Type: 
  Country: None (occurrence: None)
  Receive Date: 20100301
  Receipt Date: 20090521
  Transmission Date: 20100710
  Serious: Yes (Hospitalization, Other)
  Sender: FDA-Public Use
  Company Number: RB-15889-2009

PATIENT
  Age: 5 Year
  Sex: Male
  Weight: 16.7831 kg

DRUGS (1)
  1. SUBOXONE [Suspect]
     Indication: DRUG USE FOR UNKNOWN INDICATION
     Dosage: ORAL
     Route: 048
     Dates: start: 20090521, end: 20090521

REACTIONS (3)
  - ACCIDENTAL DRUG INTAKE BY CHILD [None]
  - COLD SWEAT [None]
  - TREMOR [None]
